FAERS Safety Report 6883737-4 (Version None)
Quarter: 2010Q3

REPORT INFORMATION
  Report Type: 
  Country: None (occurrence: None)
  Receive Date: 20100729
  Receipt Date: 20100726
  Transmission Date: 20110219
  Serious: Yes (Hospitalization)
  Sender: FDA-Public Use
  Company Number: A0872762A

PATIENT
  Age: 10 Year
  Sex: Male
  Weight: 44.8 kg

DRUGS (3)
  1. ROSIGLITAZONE [Suspect]
     Indication: FOCAL SEGMENTAL GLOMERULOSCLEROSIS
     Dosage: 4MG PER DAY
     Route: 048
     Dates: start: 20100601, end: 20100703
  2. LISINOPRIL [Suspect]
     Indication: FOCAL SEGMENTAL GLOMERULOSCLEROSIS
     Dosage: 2.5MG PER DAY
     Route: 048
     Dates: start: 20100601, end: 20100708
  3. LIPITOR [Concomitant]

REACTIONS (3)
  - GENERALISED OEDEMA [None]
  - PULMONARY OEDEMA [None]
  - RENAL FAILURE [None]
